FAERS Safety Report 9374023 (Version 2)
Quarter: 2013Q3

REPORT INFORMATION
  Report Type: Spontaneous
  Country: IT (occurrence: IT)
  Receive Date: 20130628
  Receipt Date: 20130806
  Transmission Date: 20140515
  Serious: Yes (Life-Threatening)
  Sender: FDA-Public Use
  Company Number: IT-RANBAXY-2013R1-70616

PATIENT
  Age: 8 Year
  Sex: Female

DRUGS (3)
  1. PARACETAMOL [Suspect]
     Indication: PYREXIA
     Dosage: 500 MG, DAILY
     Route: 048
     Dates: start: 20130308, end: 20130310
  2. NUROFEN [Suspect]
     Indication: PYREXIA
     Dosage: 3 DOSAGE UNITS, DAILY
     Route: 054
     Dates: start: 20130307, end: 20130308
  3. NUROFEN [Suspect]
     Indication: PYREXIA
     Dosage: 3 DOSAGE UNITS, DAILY
     Route: 048
     Dates: start: 20130308, end: 20130310

REACTIONS (5)
  - Cholestasis [Recovered/Resolved]
  - Hypocalcaemia [Recovered/Resolved]
  - Liver disorder [Recovered/Resolved]
  - Renal failure acute [Recovered/Resolved]
  - Sensory disturbance [Recovered/Resolved]
